FAERS Safety Report 14658951 (Version 1)
Quarter: 2018Q1

REPORT INFORMATION
  Report Type: Report from Study
  Country: US (occurrence: US)
  Receive Date: 20180320
  Receipt Date: 20180320
  Transmission Date: 20180509
  Serious: Yes (Other)
  Sender: FDA-Public Use
  Company Number: US-JAZZ-2017-US-004975

PATIENT
  Age: 55 Year
  Sex: Female

DRUGS (28)
  1. XYREM [Suspect]
     Active Substance: SODIUM OXYBATE
     Indication: NARCOLEPSY
     Dosage: 2.25 G, BID
     Route: 048
     Dates: start: 201311, end: 201312
  2. MINOCYCLINE [Concomitant]
     Active Substance: MINOCYCLINE\MINOCYCLINE HYDROCHLORIDE
  3. KLONOPIN [Concomitant]
     Active Substance: CLONAZEPAM
  4. ACZONE [Concomitant]
     Active Substance: DAPSONE
  5. AMBIEN [Concomitant]
     Active Substance: ZOLPIDEM TARTRATE
  6. SODIUM FLUORIDE. [Concomitant]
     Active Substance: SODIUM FLUORIDE
  7. OXYCODONE AND ACETAMINOPHEN [Concomitant]
     Active Substance: ACETAMINOPHEN\OXYCODONE HYDROCHLORIDE
  8. AMITIZA [Concomitant]
     Active Substance: LUBIPROSTONE
  9. LIDODERM [Concomitant]
     Active Substance: LIDOCAINE
  10. LINZESS [Concomitant]
     Active Substance: LINACLOTIDE
  11. CYCLOBENZAPRINE HYDROCHLORIDE. [Concomitant]
     Active Substance: CYCLOBENZAPRINE HYDROCHLORIDE
  12. DICYCLOVERINE [Concomitant]
     Active Substance: DICYCLOMINE HYDROCHLORIDE
  13. BENZOYL PEROXIDE. [Concomitant]
     Active Substance: BENZOYL PEROXIDE
  14. NASONEX [Concomitant]
     Active Substance: MOMETASONE FUROATE
  15. LEVSIN [Concomitant]
     Active Substance: HYOSCYAMINE SULFATE
  16. BACLOFEN. [Concomitant]
     Active Substance: BACLOFEN
  17. EFFEXOR [Concomitant]
     Active Substance: VENLAFAXINE HYDROCHLORIDE
  18. FENTANYL. [Concomitant]
     Active Substance: FENTANYL
  19. MUPIROCIN. [Concomitant]
     Active Substance: MUPIROCIN
  20. ACANYA [Concomitant]
     Active Substance: BENZOYL PEROXIDE\CLINDAMYCIN PHOSPHATE
  21. DESONIDE. [Concomitant]
     Active Substance: DESONIDE
  22. BUTORPHANOL [Concomitant]
     Active Substance: BUTORPHANOL
  23. MODAFINIL. [Concomitant]
     Active Substance: MODAFINIL
  24. CLINDAMYCIN. [Concomitant]
     Active Substance: CLINDAMYCIN
  25. CHLORHEXIDINE [Concomitant]
     Active Substance: CHLORHEXIDINE
  26. XYREM [Suspect]
     Active Substance: SODIUM OXYBATE
     Dosage: DOSE ADJUSTMENTS
     Route: 048
     Dates: start: 201312, end: 201704
  27. XYREM [Suspect]
     Active Substance: SODIUM OXYBATE
     Dosage: 3.75 G, BID
     Route: 048
     Dates: start: 201704
  28. VENLAFAXINE HCL [Concomitant]
     Active Substance: VENLAFAXINE HYDROCHLORIDE

REACTIONS (4)
  - Optic nerve disorder [Not Recovered/Not Resolved]
  - Angle closure glaucoma [Unknown]
  - Vitreous floaters [Not Recovered/Not Resolved]
  - Blood pressure increased [Unknown]

NARRATIVE: CASE EVENT DATE: 201708
